FAERS Safety Report 23965325 (Version 3)
Quarter: 2024Q4

REPORT INFORMATION
  Report Type: Report from Study
  Country: GB (occurrence: GB)
  Receive Date: 20240612
  Receipt Date: 20241214
  Transmission Date: 20250115
  Serious: Yes (Other)
  Sender: ARGENX BVBA
  Company Number: GB-ARGENX-2024-ARGX-GB004163

PATIENT

DRUGS (1)
  1. EFGARTIGIMOD ALFA [Suspect]
     Active Substance: EFGARTIGIMOD ALFA
     Indication: Myasthenia gravis
     Route: 065

REACTIONS (4)
  - Dyspnoea at rest [Unknown]
  - Joint swelling [Unknown]
  - Arthritis [Unknown]
  - Muscular weakness [Unknown]
